FAERS Safety Report 15759137 (Version 1)
Quarter: 2018Q4

REPORT INFORMATION
  Report Type: Spontaneous
  Country: IT (occurrence: IT)
  Receive Date: 20181226
  Receipt Date: 20181226
  Transmission Date: 20190205
  Serious: Yes (Other)
  Sender: FDA-Public Use
  Company Number: IT-AUROBINDO-AUR-APL-2018-062539

PATIENT
  Age: 57 Year
  Sex: Female

DRUGS (3)
  1. AVASTIN [Suspect]
     Active Substance: BEVACIZUMAB
     Indication: COLON CANCER
     Dosage: 392 MILLIGRAM, CYCLICAL
     Route: 065
     Dates: start: 20181017, end: 20181128
  2. OXALIPLATIN. [Suspect]
     Active Substance: OXALIPLATIN
     Indication: COLON CANCER
     Dosage: 162.4 MILLIGRAM, CYCLICAL
     Route: 042
     Dates: start: 20181017, end: 20181128
  3. FLUOROURACILE AHCL [Suspect]
     Active Substance: FLUOROURACIL
     Indication: COLON CANCER
     Dosage: 5348 MILLIGRAM, CYCLICAL
     Route: 042
     Dates: start: 20181017, end: 20181128

REACTIONS (4)
  - Paraesthesia [Recovered/Resolved]
  - Dysphonia [Recovered/Resolved]
  - Paraesthesia oral [Recovered/Resolved]
  - Dyspnoea [Recovered/Resolved]

NARRATIVE: CASE EVENT DATE: 20181128
